FAERS Safety Report 5599673-X (Version None)
Quarter: 2008Q1

REPORT INFORMATION
  Report Type: 
  Country: None (occurrence: None)
  Receive Date: 20080123
  Receipt Date: 20080114
  Transmission Date: 20080703
  Serious: Yes (Hospitalization, Disabling, Other)
  Sender: FDA-Public Use
  Company Number: GB-BRISTOL-MYERS SQUIBB COMPANY-14044275

PATIENT
  Age: 74 Year
  Sex: Male

DRUGS (9)
  1. APROVEL TABS 150 MG [Suspect]
     Dates: start: 20071219, end: 20080103
  2. ASPIRIN [Suspect]
     Route: 048
  3. BENDROFLUMETHIAZIDE [Concomitant]
     Route: 048
     Dates: end: 20080103
  4. DOXAZOSIN [Concomitant]
     Route: 048
  5. LISINOPRIL [Concomitant]
     Route: 048
     Dates: start: 20070723, end: 20071201
  6. MIXTARD HUMAN 70/30 [Concomitant]
     Dosage: MIXTARD(HUMAN INSULIN)24IU
     Route: 058
  7. QUININE [Concomitant]
     Route: 048
  8. SIMVASTATIN [Concomitant]
     Route: 048
  9. TILDIEM [Concomitant]
     Route: 048

REACTIONS (2)
  - BLOOD SODIUM DECREASED [None]
  - NEUROPATHY PERIPHERAL [None]
